FAERS Safety Report 9541400 (Version 1)
Quarter: 2013Q3

REPORT INFORMATION
  Report Type: Spontaneous
  Country: US (occurrence: None)
  Receive Date: 20130919
  Receipt Date: 20130919
  Transmission Date: 20140515
  Serious: Yes (Other)
  Sender: FDA-Public Use
  Company Number: None

PATIENT
  Age: 40 Year
  Sex: Female
  Weight: 61.24 kg

DRUGS (1)
  1. DOXYCYCLINE [Suspect]
     Indication: MYCOPLASMA INFECTION
     Dosage: 100MG Q12H IV
     Route: 042
     Dates: start: 20130819, end: 20130905

REACTIONS (3)
  - Rash [None]
  - Chills [None]
  - Drug hypersensitivity [None]
